FAERS Safety Report 7663104-6 (Version None)
Quarter: 2011Q3

REPORT INFORMATION
  Report Type: 
  Country: None (occurrence: None)
  Receive Date: 20110805
  Receipt Date: 20100920
  Transmission Date: 20111222
  Serious: No
  Sender: FDA-Public Use
  Company Number: US-ABBOTT-10P-163-0672045-00

PATIENT
  Sex: Female

DRUGS (1)
  1. NIASPAN [Suspect]
     Indication: DYSLIPIDAEMIA
     Dosage: 2000 MG AT BED TIME
     Route: 048
     Dates: start: 20100901

REACTIONS (6)
  - URTICARIA [None]
  - ERYTHEMA [None]
  - SKIN BURNING SENSATION [None]
  - SWELLING FACE [None]
  - FLUSHING [None]
  - FEELING HOT [None]
